FAERS Safety Report 6932477-1 (Version None)
Quarter: 2010Q3

REPORT INFORMATION
  Report Type: 
  Country: None (occurrence: None)
  Receive Date: 20100819
  Receipt Date: 20100813
  Transmission Date: 20110219
  Serious: Yes (Hospitalization)
  Sender: FDA-Public Use
  Company Number: AU-MERCK-1008USA01748

PATIENT
  Age: 76 Year
  Sex: Male

DRUGS (6)
  1. ZOCOR [Suspect]
     Route: 048
     Dates: end: 20100522
  2. BUMEX [Concomitant]
     Route: 065
  3. CLARITHROMYCIN [Concomitant]
     Route: 065
  4. FOLIC ACID [Concomitant]
     Route: 065
  5. SLOW-K [Concomitant]
     Route: 065
  6. ALLOPURINOL [Concomitant]
     Route: 065

REACTIONS (2)
  - RENAL FAILURE ACUTE [None]
  - RHABDOMYOLYSIS [None]
